FAERS Safety Report 7640924-5 (Version None)
Quarter: 2011Q3

REPORT INFORMATION
  Report Type: 
  Country: None (occurrence: None)
  Receive Date: 20110728
  Receipt Date: 20110718
  Transmission Date: 20111222
  Serious: Yes (Hospitalization, Other)
  Sender: FDA-Public Use
  Company Number: US-MYLANLABS-2011S1014972

PATIENT
  Sex: Male

DRUGS (1)
  1. PHENYTOIN SODIUM CAP [Suspect]

REACTIONS (1)
  - CONVULSION [None]
